FAERS Safety Report 21245480 (Version 1)
Quarter: 2022Q3

REPORT INFORMATION
  Report Type: Spontaneous
  Country: FR (occurrence: FR)
  Receive Date: 20220824
  Receipt Date: 20220824
  Transmission Date: 20221027
  Serious: Yes (Other)
  Sender: FDA-Public Use
  Company Number: FR-SUN PHARMACEUTICAL INDUSTRIES LTD-2022RR-349693

PATIENT
  Age: 58 Year
  Sex: Female
  Weight: 52 kg

DRUGS (18)
  1. PREGABALIN [Suspect]
     Active Substance: PREGABALIN
     Indication: Neuralgia
     Dosage: 150 MILLIGRAM, DAILY, 50 MG 3X/D
     Route: 048
     Dates: start: 20220506, end: 20220511
  2. GABAPENTIN [Suspect]
     Active Substance: GABAPENTIN
     Indication: Neuralgia
     Dosage: 100 MG 3X/JOUR
     Route: 048
     Dates: start: 20220507, end: 20220511
  3. AMLODIPINE [Concomitant]
     Active Substance: AMLODIPINE BESYLATE
     Indication: Product used for unknown indication
     Dosage: 10 MILLIGRAM, DAILY
     Route: 048
  4. ATENOLOL [Concomitant]
     Active Substance: ATENOLOL
     Indication: Product used for unknown indication
     Dosage: 50 MILLIGRAM, DAILY, 1-0-0
     Route: 048
  5. BIKTARVY 50 mg/200 mg/25 mg, coated tablet [Concomitant]
     Indication: Product used for unknown indication
     Dosage: 1 DOSAGE FORM, DAILY
     Route: 048
  6. CACIT 1000 mg, effervescent tablets [Concomitant]
     Indication: Product used for unknown indication
     Dosage: 3 GRAM, DAILY, 3 TABLETS/DAY
     Route: 048
  7. CALCIPARINE SOUS CUTANEE 5 000 UI/0,2 ml, solution for injection [Concomitant]
     Indication: Product used for unknown indication
     Dosage: 10000 INTERNATIONAL UNIT, DAILY, 1-0-1
     Route: 048
  8. DORAVIRINE [Concomitant]
     Active Substance: DORAVIRINE
     Indication: Product used for unknown indication
     Dosage: 100 MILLIGRAM, DAILY
     Route: 048
  9. FUZEON 90 mg/ml, powder and solvent for solution for injection [Concomitant]
     Indication: Product used for unknown indication
     Dosage: 1 DOSAGE FORM, DAILY, 1 INJECTION/24H
     Route: 058
  10. HYDROCORTISONE [Concomitant]
     Active Substance: HYDROCORTISONE
     Indication: Product used for unknown indication
     Dosage: 30 MILLIGRAM, DAILY, 10 MG (2-1-0)
     Route: 048
  11. INDAPAMIDE [Concomitant]
     Active Substance: INDAPAMIDE
     Indication: Product used for unknown indication
     Dosage: 2.5 MILLIGRAM, DAILY, 1-0-0
     Route: 048
  12. KARDEGIC [Concomitant]
     Active Substance: ASPIRIN DL-LYSINE
     Indication: Product used for unknown indication
     Dosage: UNK
     Route: 048
  13. LIPOROSA 20 mg/10 mg, capsule [Concomitant]
     Indication: Product used for unknown indication
     Dosage: 1 DOSAGE FORM, DAILY
     Route: 048
  14. NORVIR 100 mg, soft capsule [Concomitant]
     Indication: Product used for unknown indication
     Dosage: 100 MILLIGRAM, DAILY, 1-0-0
     Route: 048
  15. PLAVIX 75 mg, coated tablet [Concomitant]
     Indication: Product used for unknown indication
     Dosage: 75 MILLIGRAM, DAILY, 0-1-0
     Route: 048
  16. PREZISTA 800 mg, coated tablet [Concomitant]
     Indication: Product used for unknown indication
     Dosage: 800 MILLIGRAM, DAILY
     Route: 048
  17. UN-ALFA 0,25 microgram, oral capsule [Concomitant]
     Indication: Product used for unknown indication
     Dosage: 0.25 MCG, DAILY
     Route: 048
  18. UVEDOSE 100 000 UI, oral solution in ampoule [Concomitant]
     Indication: Product used for unknown indication
     Dosage: 100000 INTERNATIONAL UNIT, MONTHLY
     Route: 048

REACTIONS (1)
  - Hepatic cytolysis [Recovered/Resolved]

NARRATIVE: CASE EVENT DATE: 20220509
